FAERS Safety Report 24233211 (Version 2)
Quarter: 2024Q3

REPORT INFORMATION
  Report Type: Spontaneous
  Country: BE (occurrence: BE)
  Receive Date: 20240821
  Receipt Date: 20240826
  Transmission Date: 20241016
  Serious: Yes (Death, Other)
  Sender: SANDOZ
  Company Number: None

PATIENT
  Age: 52 Year
  Sex: Female

DRUGS (24)
  1. AMBISOME [Suspect]
     Active Substance: AMPHOTERICIN B
     Indication: Visceral leishmaniasis
     Dosage: 1 DF,UNK UNK, Q1MONTH
     Route: 065
     Dates: start: 2009, end: 2009
  2. AMBISOME [Suspect]
     Active Substance: AMPHOTERICIN B
     Indication: Cutaneous leishmaniasis
     Dosage: 4 MG/KG, UNK
     Route: 065
  3. AMBISOME [Suspect]
     Active Substance: AMPHOTERICIN B
     Indication: Hodgkin^s disease
     Dosage: 5 MG/KG, UNK
     Route: 065
     Dates: start: 2009
  4. AMPHOTERICIN B [Suspect]
     Active Substance: AMPHOTERICIN B
     Indication: Visceral leishmaniasis
     Dosage: UNK
     Route: 065
     Dates: start: 2008
  5. AMPHOTERICIN B [Suspect]
     Active Substance: AMPHOTERICIN B
     Indication: Visceral leishmaniasis
     Dosage: 4MG/KG FOR 10 DAYS
     Route: 065
  6. CYCLOSPORINE [Suspect]
     Active Substance: CYCLOSPORINE
     Indication: Cryoglobulinaemia
     Dosage: UNK
     Route: 065
  7. CYCLOSPORINE [Suspect]
     Active Substance: CYCLOSPORINE
     Dosage: UNK
     Route: 065
  8. CYCLOSPORINE [Suspect]
     Active Substance: CYCLOSPORINE
     Indication: Vasculitis
     Dosage: UNKNOWN
     Route: 065
  9. CYCLOPHOSPHAMIDE [Suspect]
     Active Substance: CYCLOPHOSPHAMIDE
     Indication: Hodgkin^s disease
     Dosage: UNKNOWN
     Route: 065
     Dates: start: 2007
  10. CYCLOPHOSPHAMIDE [Suspect]
     Active Substance: CYCLOPHOSPHAMIDE
     Route: 065
     Dates: start: 2007
  11. ETANERCEPT [Suspect]
     Active Substance: ETANERCEPT
     Indication: Hodgkin^s disease
     Dosage: UNK
     Route: 065
  12. ETANERCEPT [Suspect]
     Active Substance: ETANERCEPT
     Indication: Rheumatoid arthritis
     Dosage: UNK
     Route: 065
  13. ETANERCEPT [Suspect]
     Active Substance: ETANERCEPT
     Indication: Vasculitis
     Dosage: UNKNOWN
     Route: 065
  14. METHYLPREDNISOLONE [Suspect]
     Active Substance: METHYLPREDNISOLONE
     Indication: Cryoglobulinaemia
     Dosage: UNK
     Route: 065
  15. METHYLPREDNISOLONE [Suspect]
     Active Substance: METHYLPREDNISOLONE
     Indication: Rheumatoid arthritis
     Dosage: UNK
     Route: 065
  16. METHYLPREDNISOLONE [Suspect]
     Active Substance: METHYLPREDNISOLONE
     Indication: Vasculitis
     Dosage: UNKNOWN
     Route: 065
  17. MILTEFOSINE [Suspect]
     Active Substance: MILTEFOSINE
     Indication: Immunosuppression
     Dosage: 100 MG
     Route: 065
  18. RITUXIMAB [Suspect]
     Active Substance: RITUXIMAB
     Indication: Cryoglobulinaemia
     Dosage: UNK
     Route: 065
     Dates: start: 2009, end: 2010
  19. RITUXIMAB [Suspect]
     Active Substance: RITUXIMAB
     Indication: Rheumatoid arthritis
     Dosage: UNK
     Route: 065
  20. RITUXIMAB [Suspect]
     Active Substance: RITUXIMAB
     Indication: Immunosuppression
     Dosage: UNKNOWN
     Route: 065
     Dates: start: 2009
  21. RITUXIMAB [Suspect]
     Active Substance: RITUXIMAB
     Indication: Vasculitis
     Dosage: UNKNOWN
     Route: 065
  22. PROCARBAZINE [Concomitant]
     Active Substance: PROCARBAZINE
     Indication: Rheumatoid arthritis
     Dosage: UNKNOWN
     Route: 065
  23. PROCARBAZINE [Concomitant]
     Active Substance: PROCARBAZINE
     Route: 065
  24. PROCARBAZINE [Concomitant]
     Active Substance: PROCARBAZINE
     Route: 065

REACTIONS (8)
  - Visceral leishmaniasis [Fatal]
  - Mucocutaneous leishmaniasis [Not Recovered/Not Resolved]
  - Gastrointestinal disorder [Unknown]
  - Pathogen resistance [Unknown]
  - Infection [Not Recovered/Not Resolved]
  - Mucocutaneous leishmaniasis [Unknown]
  - Off label use [Unknown]
  - Drug ineffective for unapproved indication [Not Recovered/Not Resolved]

NARRATIVE: CASE EVENT DATE: 20080101
